FAERS Safety Report 16067560 (Version 1)
Quarter: 2019Q1

REPORT INFORMATION
  Report Type: Spontaneous
  Country: AU (occurrence: AU)
  Receive Date: 20190313
  Receipt Date: 20190313
  Transmission Date: 20190418
  Serious: Yes (Other)
  Sender: FDA-Public Use
  Company Number: AU-ELI_LILLY_AND_COMPANY-AU201903003682

PATIENT
  Sex: Male

DRUGS (6)
  1. MINAX METOPROLOL SUCCINATE [Concomitant]
     Indication: CARDIAC DISORDER
  2. AVAPRO [Concomitant]
     Active Substance: IRBESARTAN
     Indication: PRODUCT USED FOR UNKNOWN INDICATION
  3. MESASAL [Concomitant]
     Indication: PRODUCT USED FOR UNKNOWN INDICATION
  4. DIAFORMIN [Concomitant]
     Active Substance: METFORMIN HYDROCHLORIDE
     Indication: PRODUCT USED FOR UNKNOWN INDICATION
  5. SIMVAR [Concomitant]
     Indication: PRODUCT USED FOR UNKNOWN INDICATION
  6. HUMULIN 70/30 [Suspect]
     Active Substance: INSULIN HUMAN
     Indication: TYPE 2 DIABETES MELLITUS
     Dosage: 30 IU, BID
     Route: 065
     Dates: start: 200303

REACTIONS (3)
  - Arterial occlusive disease [Unknown]
  - Blood glucose increased [Unknown]
  - Product dose omission [Unknown]
